FAERS Safety Report 7293632-7 (Version None)
Quarter: 2011Q1

REPORT INFORMATION
  Report Type: 
  Country: None (occurrence: None)
  Receive Date: 20110215
  Receipt Date: 20110209
  Transmission Date: 20110831
  Serious: Yes (Other)
  Sender: FDA-Public Use
  Company Number: A0913294A

PATIENT
  Age: 35 Year
  Sex: Female

DRUGS (2)
  1. XELODA [Suspect]
     Dosage: 2000MGM2 CYCLIC
     Route: 048
     Dates: start: 20100301
  2. TYKERB [Suspect]
     Indication: BREAST CANCER
     Dosage: 1250MG PER DAY
     Route: 048
     Dates: start: 20100301

REACTIONS (3)
  - PALMAR-PLANTAR ERYTHRODYSAESTHESIA SYNDROME [None]
  - GASTROINTESTINAL TOXICITY [None]
  - ASTHENIA [None]
